FAERS Safety Report 16962394 (Version 1)
Quarter: 2019Q4

REPORT INFORMATION
  Report Type: Spontaneous
  Country: US (occurrence: US)
  Receive Date: 20191025
  Receipt Date: 20191025
  Transmission Date: 20200122
  Serious: Yes (Other)
  Sender: FDA-Public Use
  Company Number: None

PATIENT
  Age: 55 Year
  Sex: Male
  Weight: 69.3 kg

DRUGS (1)
  1. GAMUNEX-C [Suspect]
     Active Substance: HUMAN IMMUNOGLOBULIN G
     Indication: IMMUNODEFICIENCY COMMON VARIABLE
     Dosage: 17 G INTRAVENOUS Q 6 WEEKS
     Route: 042
     Dates: start: 20191022, end: 20191022

REACTIONS (4)
  - Pruritus [None]
  - Urticaria [None]
  - Rash [None]
  - Post procedural complication [None]

NARRATIVE: CASE EVENT DATE: 20191014
